FAERS Safety Report 10787581 (Version 1)
Quarter: 2015Q1

REPORT INFORMATION
  Report Type: Report from Study
  Country: US (occurrence: US)
  Receive Date: 20150212
  Receipt Date: 20150212
  Transmission Date: 20150721
  Serious: Yes (Other)
  Sender: FDA-Public Use
  Company Number: US-ACCORD-028549

PATIENT
  Age: 56 Year
  Sex: Male

DRUGS (4)
  1. METHOTREXATE [Suspect]
     Active Substance: METHOTREXATE
     Indication: MYCOSIS FUNGOIDES
  2. ACITRETIN. [Concomitant]
     Active Substance: ACITRETIN
  3. ISOTRETINOIN [Concomitant]
     Active Substance: ISOTRETINOIN
  4. DENILEUKIN DIFTITOX [Concomitant]
     Active Substance: DENILEUKIN DIFTITOX

REACTIONS (1)
  - Vitiligo [Unknown]
